FAERS Safety Report 9790024 (Version 1)
Quarter: 2013Q4

REPORT INFORMATION
  Report Type: Spontaneous
  Country: None (occurrence: None)
  Receive Date: 20131230
  Receipt Date: 20131230
  Transmission Date: 20140711
  Serious: Yes (Other)
  Sender: FDA-Public Use
  Company Number: None

PATIENT
  Age: 51 Year
  Sex: Female
  Weight: 60.33 kg

DRUGS (2)
  1. SMZ/TMP DS 800-160 TAB INTERPHARM [Suspect]
     Indication: INFECTION PROPHYLAXIS
     Dosage: 1 PILL 2 X PER DAY
     Route: 048
     Dates: start: 20131218, end: 20131225
  2. SMZ/TMP DS 800-160 TAB INTERPHARM [Suspect]
     Indication: URETEROSCOPY
     Dosage: 1 PILL 2 X PER DAY
     Route: 048
     Dates: start: 20131218, end: 20131225

REACTIONS (11)
  - Flank pain [None]
  - Pruritus [None]
  - Blister [None]
  - Pain [None]
  - Headache [None]
  - Arthralgia [None]
  - Musculoskeletal stiffness [None]
  - Dry mouth [None]
  - Nasal dryness [None]
  - Anal pruritus [None]
  - Proctalgia [None]
